FAERS Safety Report 14766556 (Version 2)
Quarter: 2018Q2

REPORT INFORMATION
  Report Type: Spontaneous
  Country: GB (occurrence: GB)
  Receive Date: 20180416
  Receipt Date: 20180629
  Transmission Date: 20180711
  Serious: Yes (Congenital Anomaly)
  Sender: FDA-Public Use
  Company Number: GB-TEVA-2018-GB-882252

PATIENT

DRUGS (2)
  1. CYCLIZINE [Concomitant]
     Active Substance: CYCLIZINE
     Indication: HYPEREMESIS GRAVIDARUM
     Route: 064
     Dates: start: 20170902
  2. ONDANSETRON [Suspect]
     Active Substance: ONDANSETRON
     Indication: HYPEREMESIS GRAVIDARUM
     Route: 064
     Dates: start: 20170902

REACTIONS (1)
  - Congenital hand malformation [Unknown]
